FAERS Safety Report 7210525-1 (Version None)
Quarter: 2011Q1

REPORT INFORMATION
  Report Type: 
  Country: None (occurrence: None)
  Receive Date: 20110105
  Receipt Date: 20101229
  Transmission Date: 20110831
  Serious: Yes (Death)
  Sender: FDA-Public Use
  Company Number: US-CELGENEUS-163-21880-10123269

PATIENT
  Sex: Female

DRUGS (17)
  1. COUMADIN [Concomitant]
     Route: 048
  2. COLACE [Concomitant]
     Route: 048
  3. VALTREX [Concomitant]
     Route: 048
  4. DECADRON [Concomitant]
     Route: 048
  5. ANZEMET [Concomitant]
     Route: 048
  6. FLAXSEED OIL [Concomitant]
     Route: 048
  7. MYLANTA [Concomitant]
     Route: 065
  8. ASPIRIN [Concomitant]
     Route: 048
  9. CALCIUM PLUS VITAMIN D [Concomitant]
     Dosage: 600
     Route: 048
  10. CENTRUM SILVER [Concomitant]
     Route: 048
  11. ZOMETA [Concomitant]
     Route: 065
  12. HYDROCODONE BITARTRATE/HOMATROPINE METHYBROMIDE [Concomitant]
     Route: 048
  13. REVLIMID [Suspect]
     Indication: MULTIPLE MYELOMA
     Route: 048
     Dates: start: 20090201, end: 20090101
  14. RESTASIS [Concomitant]
     Route: 065
  15. SOTALOL HCL [Concomitant]
     Route: 048
  16. TOPROL-XL [Concomitant]
     Route: 048
  17. LIDODERM [Concomitant]
     Route: 065

REACTIONS (1)
  - DEATH [None]
